FAERS Safety Report 13093822 (Version 1)
Quarter: 2017Q1

REPORT INFORMATION
  Report Type: Spontaneous
  Country: GR (occurrence: GR)
  Receive Date: 20170106
  Receipt Date: 20170106
  Transmission Date: 20170428
  Serious: Yes (Other)
  Sender: FDA-Public Use
  Company Number: PHHY2017GR000609

PATIENT
  Age: 70 Year
  Sex: Male

DRUGS (4)
  1. COLCHICINE. [Suspect]
     Active Substance: COLCHICINE
     Dosage: 1.5 MG, UNK
     Route: 065
  2. ACZ885 [Suspect]
     Active Substance: CANAKINUMAB
     Indication: FAMILIAL MEDITERRANEAN FEVER
     Dosage: 150 MG, EVERY 8 WEEKS
     Route: 065
  3. ACZ885 [Suspect]
     Active Substance: CANAKINUMAB
     Dosage: 150 MG, EVERY 4 WEEKS
     Route: 065
  4. COLCHICINE. [Suspect]
     Active Substance: COLCHICINE
     Indication: FAMILIAL MEDITERRANEAN FEVER
     Dosage: UNK
     Route: 065

REACTIONS (9)
  - Familial mediterranean fever [Unknown]
  - Tendonitis [Unknown]
  - Diarrhoea [Unknown]
  - Product use issue [Unknown]
  - Arthralgia [Unknown]
  - Disease recurrence [Unknown]
  - Therapy partial responder [Unknown]
  - Pyrexia [Unknown]
  - Rash [Unknown]
